FAERS Safety Report 13688943 (Version 1)
Quarter: 2017Q2

REPORT INFORMATION
  Report Type: Spontaneous
  Country: US (occurrence: US)
  Receive Date: 20170624
  Receipt Date: 20170624
  Transmission Date: 20170830
  Serious: Yes (Hospitalization)
  Sender: FDA-Public Use
  Company Number: None

PATIENT
  Age: 61 Year
  Sex: Female
  Weight: 71.1 kg

DRUGS (5)
  1. ENSURE [Concomitant]
     Active Substance: AMINO ACIDS\DEXTROSE\ELECTROLYTES NOS\SOYBEAN OIL\VITAMINS
  2. TYLENOL IV [Suspect]
     Active Substance: ACETAMINOPHEN
     Indication: PROCEDURAL PAIN
     Dosage: ?          QUANTITY:3 IV;?
     Route: 042
     Dates: start: 20170607, end: 20170608
  3. IBUPROFEN. [Concomitant]
     Active Substance: IBUPROFEN
  4. ALBUTEROL. [Concomitant]
     Active Substance: ALBUTEROL
  5. BENTYL [Concomitant]
     Active Substance: DICYCLOMINE HYDROCHLORIDE

REACTIONS (2)
  - Weight decreased [None]
  - Pancreatitis [None]

NARRATIVE: CASE EVENT DATE: 20170608
